FAERS Safety Report 15674874 (Version 4)
Quarter: 2019Q1

REPORT INFORMATION
  Report Type: Spontaneous
  Country: AU (occurrence: AU)
  Receive Date: 20181130
  Receipt Date: 20190108
  Transmission Date: 20190417
  Serious: Yes (Other)
  Sender: FDA-Public Use
  Company Number: AU-ABBVIE-18P-008-2574029-00

PATIENT
  Age: 64 Year
  Sex: Male

DRUGS (4)
  1. OCTREOTIDE. [Concomitant]
     Active Substance: OCTREOTIDE
     Indication: NEOPLASM MALIGNANT
     Route: 065
  2. TESTOGEL [Suspect]
     Active Substance: TESTOSTERONE
     Indication: CARCINOID TUMOUR
  3. TESTOGEL [Suspect]
     Active Substance: TESTOSTERONE
     Indication: ANDROGEN DEFICIENCY
     Dosage: LAST DOSE OF TESTOGEL ADMINISTERED WAS ON 03-DEC-2018.
     Route: 062
     Dates: start: 2005
  4. TESTOGEL [Suspect]
     Active Substance: TESTOSTERONE
     Indication: HYPOGONADISM

REACTIONS (5)
  - Paraneoplastic syndrome [Unknown]
  - Off label use [Unknown]
  - Therapeutic response unexpected [Unknown]
  - Product dose omission [Unknown]
  - Pain [Unknown]

NARRATIVE: CASE EVENT DATE: 2015
